FAERS Safety Report 9542858 (Version 1)
Quarter: 2013Q3

REPORT INFORMATION
  Report Type: Spontaneous
  Country: US (occurrence: US)
  Receive Date: 20130923
  Receipt Date: 20130923
  Transmission Date: 20140515
  Serious: No
  Sender: FDA-Public Use
  Company Number: US-PFIZER INC-2013272342

PATIENT
  Age: 72 Year
  Sex: Female
  Weight: 72.56 kg

DRUGS (1)
  1. ADVIL [Suspect]
     Indication: SPINAL PAIN
     Dosage: 200 MG, UNK
     Route: 048

REACTIONS (2)
  - Glossodynia [Recovered/Resolved]
  - Oral discomfort [Recovered/Resolved]
